FAERS Safety Report 7280038-X (Version None)
Quarter: 2011Q1

REPORT INFORMATION
  Report Type: 
  Country: None (occurrence: None)
  Receive Date: 20110208
  Receipt Date: 20110202
  Transmission Date: 20110831
  Serious: Yes (Other)
  Sender: FDA-Public Use
  Company Number: SE-PFIZER INC-2011024582

PATIENT
  Age: 76 Year
  Sex: Female

DRUGS (3)
  1. KALIUM [Concomitant]
     Dosage: UNK
  2. EMCONCOR [Concomitant]
     Dosage: UNK
  3. XALATAN [Suspect]
     Dosage: UNK

REACTIONS (1)
  - INTRAOCULAR PRESSURE INCREASED [None]
